FAERS Safety Report 7509327-8 (Version None)
Quarter: 2011Q2

REPORT INFORMATION
  Report Type: 
  Country: None (occurrence: None)
  Receive Date: 20110527
  Receipt Date: 20110517
  Transmission Date: 20111010
  Serious: Yes (Hospitalization)
  Sender: FDA-Public Use
  Company Number: PHHY2011US42838

PATIENT
  Sex: Female
  Weight: 94.785 kg

DRUGS (5)
  1. PRILOSEC [Concomitant]
     Dosage: 20 MG, DAILY
  2. GILENYA [Suspect]
     Indication: MULTIPLE SCLEROSIS
     Dosage: 0.5 MG, BID
     Route: 048
     Dates: start: 20110404
  3. CONTRACEPTIVES NOS [Concomitant]
     Dosage: UNK UKN, DAILY
  4. MIRAPEX [Concomitant]
     Dosage: 0.5 MG, DAILY AT BEDTIME
  5. FAMPRIDINE [Concomitant]
     Indication: MULTIPLE SCLEROSIS
     Dosage: 10 MG, BID
     Route: 048

REACTIONS (11)
  - LYMPHOCYTE PERCENTAGE DECREASED [None]
  - CHEST PAIN [None]
  - NEUTROPHIL PERCENTAGE INCREASED [None]
  - CHEST DISCOMFORT [None]
  - ALANINE AMINOTRANSFERASE INCREASED [None]
  - TROPONIN INCREASED [None]
  - CORONARY ARTERY STENOSIS [None]
  - MONOCYTE PERCENTAGE INCREASED [None]
  - ACUTE MYOCARDIAL INFARCTION [None]
  - NAUSEA [None]
  - BLOOD CREATINE PHOSPHOKINASE MB INCREASED [None]
